FAERS Safety Report 4787489-3 (Version None)
Quarter: 2005Q4

REPORT INFORMATION
  Report Type: 
  Country: None (occurrence: None)
  Receive Date: 20051003
  Receipt Date: 20050922
  Transmission Date: 20060501
  Serious: Yes (Hospitalization, Disabling, Other)
  Sender: FDA-Public Use
  Company Number: 2005132454

PATIENT
  Age: 51 Year
  Sex: Female
  Weight: 107.0489 kg

DRUGS (7)
  1. ZYRTEC [Suspect]
     Indication: LUNG DISORDER
     Dosage: 10 MG (10 MG, 1 IN 1D)
  2. PREVACID [Concomitant]
  3. XANAX [Concomitant]
  4. HYDROCODONE (HYDROCODONE) [Concomitant]
  5. MIRAPEX [Concomitant]
  6. PROVIGIL [Concomitant]
  7. ADVAIR DISKUS 100/50 [Concomitant]

REACTIONS (6)
  - CONDITION AGGRAVATED [None]
  - DECREASED ACTIVITY [None]
  - INTERVERTEBRAL DISC DISORDER [None]
  - INTERVERTEBRAL DISC PROTRUSION [None]
  - PAIN [None]
  - PNEUMONIA [None]
